FAERS Safety Report 26105643 (Version 1)
Quarter: 2025Q4

REPORT INFORMATION
  Report Type: Spontaneous
  Country: CA (occurrence: CA)
  Receive Date: 20251201
  Receipt Date: 20251201
  Transmission Date: 20260118
  Serious: Yes (Hospitalization)
  Sender: Kenvue
  Company Number: CA-KENVUE-20251109177

PATIENT

DRUGS (2)
  1. TYLENOL [Suspect]
     Active Substance: ACETAMINOPHEN
     Indication: Product used for unknown indication
     Route: 065
  2. RENFLEXIS [Suspect]
     Active Substance: INFLIXIMAB-ABDA
     Indication: Colitis ulcerative
     Dosage: SINGLE USE VIAL, 450 MILLIGRAM, 1 EVERY 4 WEEKS

REACTIONS (3)
  - Urinary tract infection [Recovering/Resolving]
  - Drug level increased [Recovering/Resolving]
  - Off label use [Recovering/Resolving]
